FAERS Safety Report 25097413 (Version 1)
Quarter: 2025Q1

REPORT INFORMATION
  Report Type: Spontaneous
  Country: PK (occurrence: PK)
  Receive Date: 20250320
  Receipt Date: 20250320
  Transmission Date: 20250408
  Serious: Yes (Hospitalization, Other)
  Sender: RANBAXY
  Company Number: PK-SUN PHARMACEUTICAL INDUSTRIES LTD-2025R1-499039

PATIENT
  Age: 42 Year
  Sex: Female

DRUGS (1)
  1. EMPAGLIFLOZIN\METFORMIN HYDROCHLORIDE [Suspect]
     Active Substance: EMPAGLIFLOZIN\METFORMIN HYDROCHLORIDE
     Indication: Type 2 diabetes mellitus
     Route: 065

REACTIONS (2)
  - Euglycaemic diabetic ketoacidosis [Unknown]
  - Drug ineffective [Unknown]
